FAERS Safety Report 6077145-6 (Version None)
Quarter: 2009Q1

REPORT INFORMATION
  Report Type: 
  Country: None (occurrence: None)
  Receive Date: 20090210
  Receipt Date: 20090126
  Transmission Date: 20090719
  Serious: Yes (Death)
  Sender: FDA-Public Use
  Company Number: 090130-0000124

PATIENT
  Age: 31 Year
  Sex: Female

DRUGS (2)
  1. INDOCIN [Suspect]
     Indication: HYPERCALCAEMIA
     Dosage: 1 MG/KG; QD; PO, 3 MG/KG; QD; PO
     Route: 048
  2. STEROID (NO PREF. NAME) [Suspect]
     Indication: HYPERCALCAEMIA
     Dosage: 1 MG/KG;

REACTIONS (4)
  - NECROTISING COLITIS [None]
  - PNEUMATOSIS [None]
  - PNEUMONIA KLEBSIELLA [None]
  - SEPSIS [None]
